FAERS Safety Report 6271462-2 (Version None)
Quarter: 2009Q3

REPORT INFORMATION
  Report Type: 
  Country: None (occurrence: None)
  Receive Date: 20090717
  Receipt Date: 20090708
  Transmission Date: 20100115
  Serious: Yes (Other)
  Sender: FDA-Public Use
  Company Number: PHEH2009US07272

PATIENT
  Sex: Male

DRUGS (1)
  1. SANDOSTATIN LAR [Suspect]
     Dosage: 20 MG, QMO
     Dates: start: 20090401, end: 20090601

REACTIONS (6)
  - BLINDNESS [None]
  - CYST REMOVAL [None]
  - HYPOAESTHESIA [None]
  - PARAESTHESIA [None]
  - TESTICULAR CYST [None]
  - VISION BLURRED [None]
